FAERS Safety Report 20566356 (Version 1)
Quarter: 2022Q1

REPORT INFORMATION
  Report Type: Spontaneous
  Country: CA (occurrence: CA)
  Receive Date: 20220308
  Receipt Date: 20220308
  Transmission Date: 20220424
  Serious: Yes (Life-Threatening, Hospitalization, Other)
  Sender: FDA-Public Use
  Company Number: CA-TEVA-2022-CA-2013477

PATIENT
  Age: 87 Year
  Sex: Male
  Weight: 84 kg

DRUGS (20)
  1. LORAZEPAM [Suspect]
     Active Substance: LORAZEPAM
     Route: 060
  2. LORAZEPAM [Suspect]
     Active Substance: LORAZEPAM
     Route: 060
  3. GABAPENTIN [Suspect]
     Active Substance: GABAPENTIN
     Route: 048
  4. HYDROMORPHONE [Suspect]
     Active Substance: HYDROMORPHONE
     Route: 058
  5. KETAMINE [Suspect]
     Active Substance: KETAMINE
     Route: 042
  6. MORPHINE [Suspect]
     Active Substance: MORPHINE
     Route: 042
  7. MORPHINE [Suspect]
     Active Substance: MORPHINE
     Route: 058
  8. ACETAMINOPHEN [Concomitant]
     Active Substance: ACETAMINOPHEN
  9. CITALOPRAM [Concomitant]
     Active Substance: CITALOPRAM HYDROBROMIDE
  10. ELIQUIS [Concomitant]
     Active Substance: APIXABAN
  11. FERROUS SULFATE [Concomitant]
     Active Substance: FERROUS SULFATE
  12. IPRATROPIUM [Concomitant]
     Active Substance: IPRATROPIUM
  13. LEVOTHYROXINE [Concomitant]
     Active Substance: LEVOTHYROXINE
  14. NITRAZEPAM [Concomitant]
     Active Substance: NITRAZEPAM
  15. ALBUTEROL [Concomitant]
     Active Substance: ALBUTEROL
  16. SIMVASTATIN [Concomitant]
     Active Substance: SIMVASTATIN
  17. SPIRIVA [Concomitant]
     Active Substance: TIOTROPIUM BROMIDE MONOHYDRATE
     Route: 065
  18. TAMSULOSIN [Concomitant]
     Active Substance: TAMSULOSIN
  19. VERAPAMIL HCL [Concomitant]
     Active Substance: VERAPAMIL HYDROCHLORIDE
  20. VITAMIN D [Concomitant]
     Active Substance: VITAMIN D NOS

REACTIONS (1)
  - Respiratory arrest [Recovered/Resolved]
